FAERS Safety Report 15834950 (Version 1)
Quarter: 2019Q1

REPORT INFORMATION
  Report Type: Spontaneous
  Country: GB (occurrence: GB)
  Receive Date: 20190116
  Receipt Date: 20190116
  Transmission Date: 20190417
  Serious: Yes (Death)
  Sender: FDA-Public Use
  Company Number: GB-TEIKOKU PHARMA USA-TPU2019-00019

PATIENT
  Age: 31 Year
  Sex: Female

DRUGS (6)
  1. DROPERIDOL. [Suspect]
     Active Substance: DROPERIDOL
     Indication: APPENDICECTOMY
     Route: 065
  2. FENTANYL. [Suspect]
     Active Substance: FENTANYL
     Indication: APPENDICECTOMY
     Route: 065
  3. NITROUS OXIDE. [Suspect]
     Active Substance: NITROUS OXIDE
     Indication: APPENDICECTOMY
     Route: 065
  4. FLAXEDIL [Suspect]
     Active Substance: GALLAMINE TRIETHIODIDE
     Indication: APPENDICECTOMY
     Route: 051
  5. THIOPENTAL [Suspect]
     Active Substance: THIOPENTAL
     Indication: APPENDICECTOMY
     Route: 065
  6. LIDOCAINE. [Suspect]
     Active Substance: LIDOCAINE
     Indication: APPENDICECTOMY
     Route: 065

REACTIONS (1)
  - Cardiac arrest [Fatal]

NARRATIVE: CASE EVENT DATE: 19740706
